FAERS Safety Report 6447605-4 (Version None)
Quarter: 2009Q4

REPORT INFORMATION
  Report Type: 
  Country: None (occurrence: None)
  Receive Date: 20091119
  Receipt Date: 20090914
  Transmission Date: 20100525
  Serious: Yes (Other)
  Sender: FDA-Public Use
  Company Number: US-AMGEN-KDL363638

PATIENT
  Sex: Female
  Weight: 59.7 kg

DRUGS (3)
  1. ENBREL [Suspect]
     Indication: RHEUMATOID ARTHRITIS
     Route: 058
     Dates: start: 20081001
  2. ETODOLAC [Concomitant]
     Dates: start: 20050101
  3. OSCAL [Concomitant]
     Dates: start: 20050101

REACTIONS (5)
  - DRY SKIN [None]
  - LUPUS-LIKE SYNDROME [None]
  - RASH PRURITIC [None]
  - RHEUMATOID ARTHRITIS [None]
  - SKIN DISCOLOURATION [None]
